FAERS Safety Report 5430343-4 (Version None)
Quarter: 2007Q3

REPORT INFORMATION
  Report Type: 
  Country: None (occurrence: None)
  Receive Date: 20070829
  Receipt Date: 20070815
  Transmission Date: 20080115
  Serious: Yes (Hospitalization)
  Sender: FDA-Public Use
  Company Number: FABR-12107

PATIENT
  Age: 39 Year
  Sex: Male
  Weight: 66.3 kg

DRUGS (25)
  1. FABRAZYME. MFR: GENZYM CORPORATION [Suspect]
     Indication: FABRY'S DISEASE
     Dosage: 75 MG Q2WKS IV
     Route: 042
     Dates: start: 20030701
  2. COTRIM [Concomitant]
  3. VALCYTE [Concomitant]
  4. PANTOPRAZOLE SODIUM [Concomitant]
  5. FORLAX [Concomitant]
  6. TEGRETOL [Concomitant]
  7. MORPHINE SULFATE [Concomitant]
  8. MYFORTIC [Concomitant]
  9. HALOPERIDOL [Concomitant]
  10. CYCLOSPORINE [Concomitant]
  11. METHYLPREDNISOLONE [Concomitant]
  12. MUSARIL [Concomitant]
  13. FOLCUR [Concomitant]
  14. LYRICA [Concomitant]
  15. BATRAFEN [Concomitant]
  16. FUROSEMIDE [Concomitant]
  17. ALLOPURINOL [Concomitant]
  18. CLINDAMYCIN-CT [Concomitant]
  19. ATACAND [Concomitant]
  20. PREDNISOLONE [Concomitant]
  21. TEGRETOL [Concomitant]
  22. DEDREL [Concomitant]
  23. BELOK ZOK [Concomitant]
  24. ARANESP [Concomitant]
  25. ASPIRIN [Concomitant]

REACTIONS (6)
  - CLOSTRIDIUM DIFFICILE COLITIS [None]
  - RENAL FAILURE [None]
  - RENAL TRANSPLANT [None]
  - SEPSIS [None]
  - SKIN LACERATION [None]
  - SOMNOLENCE [None]
